FAERS Safety Report 22074307 (Version 6)
Quarter: 2024Q4

REPORT INFORMATION
  Report Type: Spontaneous
  Country: IN (occurrence: IN)
  Receive Date: 20230308
  Receipt Date: 20241125
  Transmission Date: 20250115
  Serious: Yes (Hospitalization, Other)
  Sender: PFIZER
  Company Number: IN-PFIZER INC-PV202300043309

PATIENT
  Age: 72 Year
  Sex: Male

DRUGS (2)
  1. CRIZOTINIB [Suspect]
     Active Substance: CRIZOTINIB
     Indication: Non-small cell lung cancer
     Dosage: 250 MG, 2X/DAY
     Route: 048
     Dates: start: 20221018
  2. CRIZOTINIB [Suspect]
     Active Substance: CRIZOTINIB
     Dosage: 250 MG
     Dates: start: 202211, end: 202301

REACTIONS (2)
  - Pneumonia [Unknown]
  - Hypertransaminasaemia [Unknown]
